FAERS Safety Report 11918499 (Version 3)
Quarter: 2016Q1

REPORT INFORMATION
  Report Type: Spontaneous
  Country: US (occurrence: US)
  Receive Date: 20160115
  Receipt Date: 20160324
  Transmission Date: 20160526
  Serious: Yes (Hospitalization, Other)
  Sender: FDA-Public Use
  Company Number: US-ASTRAZENECA-2016SE02701

PATIENT
  Age: 1002 Month
  Sex: Male

DRUGS (6)
  1. PULMICORT FLEXHALER [Suspect]
     Active Substance: BUDESONIDE
     Indication: ASTHMA
     Dosage: 2 PUFFS TWICE A DAY
     Route: 055
     Dates: start: 2003
  2. ALBUTEROL. [Concomitant]
     Active Substance: ALBUTEROL
     Indication: CHRONIC OBSTRUCTIVE PULMONARY DISEASE
     Dosage: TID VIA NEBULIZER AND MORE IF NEEDED
     Route: 055
  3. ALBUTEROL. [Concomitant]
     Active Substance: ALBUTEROL
     Indication: ASTHMA
     Dosage: TID VIA NEBULIZER AND MORE IF NEEDED
     Route: 055
  4. IPATROPIUM DUONEB [Concomitant]
     Indication: CHRONIC OBSTRUCTIVE PULMONARY DISEASE
     Dosage: TID VIA NEBULIZER AND MORE IF NEEDED
     Route: 055
  5. IPATROPIUM DUONEB [Concomitant]
     Indication: ASTHMA
     Dosage: TID VIA NEBULIZER AND MORE IF NEEDED
     Route: 055
  6. PULMICORT FLEXHALER [Suspect]
     Active Substance: BUDESONIDE
     Indication: ASTHMA
     Dosage: 3 PUFFS TWICE DAILY AS NEEDED AS PRESCRIBED
     Route: 055
     Dates: start: 2003

REACTIONS (8)
  - Intestinal obstruction [Recovered/Resolved]
  - Malaise [Unknown]
  - Intentional product use issue [Unknown]
  - Fluid retention [Unknown]
  - Device defective [Unknown]
  - Chronic obstructive pulmonary disease [Unknown]
  - Intentional device misuse [Unknown]
  - Dyspnoea [Unknown]

NARRATIVE: CASE EVENT DATE: 201511
